FAERS Safety Report 23977146 (Version 1)
Quarter: 2024Q2

REPORT INFORMATION
  Report Type: Report from Study
  Country: DE (occurrence: DE)
  Receive Date: 20240614
  Receipt Date: 20240614
  Transmission Date: 20240716
  Serious: Yes (Hospitalization)
  Sender: FDA-Public Use
  Company Number: DE-ROCHE-3113654

PATIENT
  Age: 63 Year
  Sex: Male
  Weight: 99 kg

DRUGS (19)
  1. PEMETREXED [Suspect]
     Active Substance: PEMETREXED
     Indication: Non-small cell lung cancer metastatic
     Dosage: 1100 MILLIGRAM, Q3W
     Route: 042
     Dates: start: 20210324
  2. PEMETREXED [Suspect]
     Active Substance: PEMETREXED
     Dosage: 1000 MILLIGRAM.LAST STUDY DRUG ADMIN PRIOR SAE 1000 MG)
     Route: 065
     Dates: start: 20220309
  3. CISPLATIN [Suspect]
     Active Substance: CISPLATIN
     Indication: Non-small cell lung cancer metastatic
     Dosage: 165 MILLIGRAM
     Route: 042
     Dates: start: 20210324
  4. CISPLATIN [Suspect]
     Active Substance: CISPLATIN
     Dosage: 150 MILLIGRAM.LAST STUDY DRUG ADMIN PRIOR SAE 150 MG
     Route: 042
     Dates: start: 20210526
  5. CLEMASTINE FUMARATE [Concomitant]
     Active Substance: CLEMASTINE FUMARATE
     Dosage: 1 MILLIGRAM, Q3W
     Route: 065
     Dates: start: 20211116
  6. CARBOPLATIN [Concomitant]
     Active Substance: CARBOPLATIN
     Dosage: UNK
     Route: 065
     Dates: start: 20220623, end: 20220916
  7. METOPROLOL [Concomitant]
     Active Substance: METOPROLOL
     Indication: Atrial fibrillation
     Dosage: 190 MILLIGRAM, QD
     Route: 065
     Dates: start: 20160601
  8. TORSEMIDE [Concomitant]
     Active Substance: TORSEMIDE
     Indication: Oedema peripheral
     Dosage: 5 MILLIGRAM, QD
     Route: 065
     Dates: start: 20210806
  9. PEMBROLIZUMAB [Concomitant]
     Active Substance: PEMBROLIZUMAB
     Indication: Non-small cell lung cancer metastatic
     Dosage: UNK, Q3W
     Route: 065
     Dates: start: 20210324
  10. PEMBROLIZUMAB [Concomitant]
     Active Substance: PEMBROLIZUMAB
     Dosage: UNK ON 19/MAY/2022, HE RECEIVED MOST RECENT DOSE OF BLINDED PEMBROLIZUMAB PRIOR TO SAE.
     Route: 065
     Dates: start: 20210519
  11. ATEZOLIZUMAB [Concomitant]
     Active Substance: ATEZOLIZUMAB
     Indication: Non-small cell lung cancer metastatic
     Dosage: UNK, Q3W
     Route: 065
     Dates: start: 20210324
  12. ATEZOLIZUMAB [Concomitant]
     Active Substance: ATEZOLIZUMAB
     Dosage: UNK ON 19/MAY/2022, HE RECEIVED MOST RECENT DOSE OF BLINDED ATEZOLIZUMAB PRIOR TO SAE.
     Route: 065
     Dates: start: 20220519
  13. XARELTO [Concomitant]
     Active Substance: RIVAROXABAN
     Indication: Atrial fibrillation
     Dosage: 20 MILLIGRAM, QD
     Route: 065
     Dates: start: 20190101
  14. LERCANIDIPINE [Concomitant]
     Active Substance: LERCANIDIPINE
     Indication: Hypertension
     Dosage: 10 MILLIGRAM, QD
     Route: 065
     Dates: start: 20150601
  15. LEVOTHYROXINE SODIUM\POTASSIUM IODIDE [Concomitant]
     Active Substance: LEVOTHYROXINE SODIUM\POTASSIUM IODIDE
     Indication: Hypothyroidism
     Dosage: 196 MILLIGRAM, QD
     Route: 065
     Dates: start: 20000601
  16. TIRAGOLUMAB [Concomitant]
     Active Substance: TIRAGOLUMAB
     Indication: Non-small cell lung cancer metastatic
     Dosage: UNK, Q3W
     Route: 065
     Dates: start: 20210324
  17. TIRAGOLUMAB [Concomitant]
     Active Substance: TIRAGOLUMAB
     Dosage: UNK ON 19/MAY/2022, HE RECEIVED MOST RECENT DOSE OF TIRAGOLUMAB PRIOR TO AE AND SAE.
     Route: 065
     Dates: start: 20210519
  18. VINORELBINE [Concomitant]
     Active Substance: VINORELBINE TARTRATE
     Dosage: UNK
     Route: 065
     Dates: start: 20220623, end: 20220916
  19. CANDESARTAN [Concomitant]
     Active Substance: CANDESARTAN
     Indication: Hypertension
     Dosage: 16 TABLET
     Route: 065
     Dates: start: 20100601

REACTIONS (1)
  - Vertigo [Not Recovered/Not Resolved]

NARRATIVE: CASE EVENT DATE: 20220607
